FAERS Safety Report 5820336-7 (Version None)
Quarter: 2008Q3

REPORT INFORMATION
  Report Type: 
  Country: None (occurrence: None)
  Receive Date: 20080724
  Receipt Date: 20070608
  Transmission Date: 20090109
  Serious: No
  Sender: FDA-Public Use
  Company Number: A0654836A

PATIENT
  Age: 50 Year
  Sex: Female

DRUGS (5)
  1. AVANDIA [Suspect]
     Dosage: 1TAB PER DAY
     Route: 048
  2. DIABETA [Concomitant]
  3. GLUCOPHAGE [Concomitant]
  4. LISINOPRIL [Concomitant]
  5. ZOCOR [Concomitant]

REACTIONS (1)
  - CARDIAC MURMUR [None]
